FAERS Safety Report 5281432-9 (Version None)
Quarter: 2007Q1

REPORT INFORMATION
  Report Type: 
  Country: None (occurrence: None)
  Receive Date: 20070323
  Receipt Date: 20070323
  Transmission Date: 20070707
  Serious: Yes (Death, Hospitalization)
  Sender: FDA-Public Use
  Company Number: None

PATIENT
  Age: 62 Year
  Sex: Female
  Weight: 98.8842 kg

DRUGS (4)
  1. OXYCONTIN [Suspect]
     Indication: DRUG REHABILITATION
     Dates: start: 20040526, end: 20040526
  2. OXYCONTIN [Suspect]
     Indication: PAIN
     Dates: start: 20040526, end: 20040526
  3. DILAUDID [Suspect]
     Indication: DRUG REHABILITATION
     Dates: start: 20040526, end: 20040526
  4. DILAUDID [Suspect]
     Indication: PAIN
     Dates: start: 20040526, end: 20040526

REACTIONS (3)
  - ARRHYTHMIA [None]
  - CONTRAINDICATION TO MEDICAL TREATMENT [None]
  - OVERDOSE [None]
